FAERS Safety Report 25629660 (Version 1)
Quarter: 2025Q3

REPORT INFORMATION
  Report Type: Report from Study
  Country: US (occurrence: US)
  Receive Date: 20250731
  Receipt Date: 20250731
  Transmission Date: 20251020
  Serious: Yes (Hospitalization)
  Sender: SPRINGWORKS THERAPEUTIC
  Company Number: US-SPRINGWORKS THERAPEUTICS-SW-002544

PATIENT
  Age: 17 Year
  Sex: Female

DRUGS (5)
  1. MIRDAMETINIB [Suspect]
     Active Substance: MIRDAMETINIB
     Indication: Neurofibromatosis
     Dosage: 2 MILLIGRAM, BID FOR 3 WEEKS THEN 1 WEEK OFF
     Route: 048
     Dates: start: 20250320
  2. MIRDAMETINIB [Suspect]
     Active Substance: MIRDAMETINIB
     Indication: Nervous system neoplasm benign
     Dosage: 3 MILLIGRAM, BID (1 MG AND 2 MG CAP TOGETHER) FOR 3 WEEKS ON 1 WEEK OFF
     Route: 048
     Dates: start: 202503
  3. MIRDAMETINIB [Suspect]
     Active Substance: MIRDAMETINIB
     Dosage: 3 MILLIGRAM, BID CONTINUOUSLY WITHOUT THE 7-DAY BREAK
     Route: 048
  4. IMODIUM [Suspect]
     Active Substance: LOPERAMIDE HYDROCHLORIDE
     Indication: Diarrhoea
  5. ESTROGENS [Suspect]
     Active Substance: ESTROGENS
     Indication: Contraception

REACTIONS (31)
  - Dehydration [Recovering/Resolving]
  - Surgery [Unknown]
  - Pain [Not Recovered/Not Resolved]
  - Loss of consciousness [Recovering/Resolving]
  - Acne [Not Recovered/Not Resolved]
  - Hypophagia [Not Recovered/Not Resolved]
  - Decreased appetite [Not Recovered/Not Resolved]
  - Gastrointestinal disorder [Not Recovered/Not Resolved]
  - Taste disorder [Not Recovered/Not Resolved]
  - Gastrooesophageal reflux disease [Not Recovered/Not Resolved]
  - Malaise [Not Recovered/Not Resolved]
  - Skin irritation [Not Recovered/Not Resolved]
  - Skin exfoliation [Not Recovered/Not Resolved]
  - Fibroma [Not Recovered/Not Resolved]
  - Pruritus [Not Recovered/Not Resolved]
  - Migraine [Recovering/Resolving]
  - Abdominal discomfort [Not Recovered/Not Resolved]
  - Constipation [Unknown]
  - Vomiting [Recovered/Resolved]
  - Vomiting [Not Recovered/Not Resolved]
  - Diarrhoea [Not Recovered/Not Resolved]
  - Fatigue [Not Recovered/Not Resolved]
  - Alopecia [Not Recovered/Not Resolved]
  - Nausea [Recovered/Resolved]
  - Nausea [Not Recovered/Not Resolved]
  - Weight increased [Not Recovered/Not Resolved]
  - Dysmenorrhoea [Not Recovered/Not Resolved]
  - Skin mass [Not Recovered/Not Resolved]
  - Neoplasm skin [Not Recovered/Not Resolved]
  - Product use issue [Unknown]
  - Intentional product use issue [Unknown]

NARRATIVE: CASE EVENT DATE: 20250328
